FAERS Safety Report 14854259 (Version 2)
Quarter: 2018Q3

REPORT INFORMATION
  Report Type: Spontaneous
  Country: IL (occurrence: IL)
  Receive Date: 20180507
  Receipt Date: 20180725
  Transmission Date: 20181010
  Serious: Yes (Hospitalization, Other)
  Sender: FDA-Public Use
  Company Number: IL-SA-2018SA128849

PATIENT
  Age: 37 Year
  Sex: Male

DRUGS (4)
  1. APIDRA [Suspect]
     Active Substance: INSULIN GLULISINE
     Indication: PRODUCT USED FOR UNKNOWN INDICATION
     Dosage: UNK UNK,QD
     Route: 058
     Dates: start: 20180410, end: 20180430
  2. TOUJEO [Suspect]
     Active Substance: INSULIN GLARGINE
     Indication: PRODUCT USED FOR UNKNOWN INDICATION
     Dosage: UNK UNK,QD
     Route: 058
  3. TOUJEO [Suspect]
     Active Substance: INSULIN GLARGINE
     Dosage: UNK UNK,QD
     Route: 058
  4. APIDRA [Suspect]
     Active Substance: INSULIN GLULISINE
     Dosage: UNK UNK,QD
     Route: 058

REACTIONS (1)
  - Pancreatitis [Recovered/Resolved]
